FAERS Safety Report 23061846 (Version 1)
Quarter: 2023Q4

REPORT INFORMATION
  Report Type: Spontaneous
  Country: US (occurrence: US)
  Receive Date: 20231013
  Receipt Date: 20231013
  Transmission Date: 20240109
  Serious: Yes (Hospitalization)
  Sender: FDA-Public Use
  Company Number: US-MSNLABS-2023MSNLIT01715

PATIENT

DRUGS (1)
  1. CAPECITABINE [Suspect]
     Active Substance: CAPECITABINE
     Indication: Product used for unknown indication
     Dosage: INGESTED UP TO 15 CAPECITABINE 500MG TABLETS
     Route: 048

REACTIONS (3)
  - Accidental overdose [Unknown]
  - Accidental exposure to product by child [Unknown]
  - Toxicity to various agents [Unknown]
